FAERS Safety Report 16981873 (Version 4)
Quarter: 2019Q4

REPORT INFORMATION
  Report Type: Report from Study
  Country: None (occurrence: NL)
  Receive Date: 20191101
  Receipt Date: 20191230
  Transmission Date: 20200122
  Serious: Yes (Hospitalization)
  Sender: FDA-Public Use
  Company Number: NL-ABBVIE-19K-114-2980827-00

PATIENT
  Age: 0 Year
  Sex: Male

DRUGS (4)
  1. SYNAGIS [Suspect]
     Active Substance: PALIVIZUMAB
     Route: 030
     Dates: start: 20191224, end: 20191224
  2. SYNAGIS [Suspect]
     Active Substance: PALIVIZUMAB
     Route: 030
     Dates: start: 20191008, end: 2019
  3. SYNAGIS [Suspect]
     Active Substance: PALIVIZUMAB
     Indication: HEART DISEASE CONGENITAL
     Route: 030
     Dates: start: 20190910, end: 20190910
  4. SYNAGIS [Suspect]
     Active Substance: PALIVIZUMAB
     Route: 030
     Dates: start: 20191127, end: 20191127

REACTIONS (11)
  - Nasopharyngitis [Recovered/Resolved]
  - Heart valve incompetence [Unknown]
  - Oxygen saturation decreased [Recovered/Resolved]
  - Crying [Recovered/Resolved]
  - Nasopharyngitis [Not Recovered/Not Resolved]
  - Dehydration [Unknown]
  - Cardiac disorder [Not Recovered/Not Resolved]
  - Protein total decreased [Unknown]
  - Viral infection [Not Recovered/Not Resolved]
  - Fat tissue decreased [Unknown]
  - Stress [Not Recovered/Not Resolved]

NARRATIVE: CASE EVENT DATE: 2019
